FAERS Safety Report 5804159-0 (Version None)
Quarter: 2008Q3

REPORT INFORMATION
  Report Type: 
  Country: None (occurrence: None)
  Receive Date: 20080707
  Receipt Date: 20080620
  Transmission Date: 20090109
  Serious: Yes (Other)
  Sender: FDA-Public Use
  Company Number: 8033905

PATIENT
  Age: 58 Year
  Sex: Male

DRUGS (7)
  1. PREDNISOLONE [Suspect]
     Indication: LYMPHOMA
  2. BLEOMYCIN SULFATE [Suspect]
     Indication: LYMPHOMA
  3. CYCLOPHOSPHAMIDE [Suspect]
     Indication: LYMPHOMA
  4. DOXORUBICIN HCL [Suspect]
     Indication: LYMPHOMA
  5. ETOPOSIDE [Suspect]
     Indication: LYMPHOMA
  6. METHOTREXATE [Suspect]
     Indication: LYMPHOMA
  7. VINCRISTINE SULFATE [Suspect]
     Indication: LYMPHOMA

REACTIONS (3)
  - BRONCHOSPASM [None]
  - OEDEMA PERIPHERAL [None]
  - WHEEZING [None]
